FAERS Safety Report 23508093 (Version 7)
Quarter: 2024Q1

REPORT INFORMATION
  Report Type: Spontaneous
  Country: IN (occurrence: IN)
  Receive Date: 20240209
  Receipt Date: 20240212
  Transmission Date: 20240410
  Serious: Yes (Other)
  Sender: FDA-Public Use
  Company Number: IN-002147023-NVSC2024IN024960

PATIENT
  Sex: Male

DRUGS (1)
  1. RANIBIZUMAB [Suspect]
     Active Substance: RANIBIZUMAB
     Indication: Retinal vein occlusion
     Dosage: UNK
     Route: 050
     Dates: start: 20231007

REACTIONS (5)
  - Macular oedema [Unknown]
  - Retinal vein occlusion [Unknown]
  - Visual impairment [Unknown]
  - Foveal reflex abnormal [Unknown]
  - Blood glucose abnormal [Unknown]
